FAERS Safety Report 8242206-X (Version None)
Quarter: 2012Q1

REPORT INFORMATION
  Report Type: 
  Country: None (occurrence: None)
  Receive Date: 20120329
  Receipt Date: 20120323
  Transmission Date: 20120608
  Serious: Yes (Death)
  Sender: FDA-Public Use
  Company Number: JP-SANOFI-AVENTIS-2011SA022903

PATIENT
  Age: 80 Year
  Sex: Male
  Weight: 73 kg

DRUGS (27)
  1. APIDRA [Suspect]
     Dosage: 20 UNITS (4-6-10)/DAY
     Route: 058
     Dates: start: 20100718, end: 20100718
  2. APIDRA [Suspect]
     Dosage: DOSE:6 UNIT(S)
     Route: 058
     Dates: start: 20100721, end: 20100721
  3. APIDRA [Suspect]
     Dosage: 22 UNITS (6-6-10)/DAY
     Route: 058
     Dates: start: 20100716, end: 20100716
  4. APIDRA [Suspect]
     Dosage: 20 UNITS (8-8-4)/DAY
     Route: 058
     Dates: start: 20100725, end: 20100725
  5. JANUVIA [Concomitant]
     Indication: DIABETES MELLITUS
     Route: 048
     Dates: start: 20100701, end: 20100715
  6. AMARYL [Concomitant]
     Indication: DIABETES MELLITUS
     Route: 048
     Dates: start: 20100707, end: 20100715
  7. LANTUS [Concomitant]
     Indication: DIABETES MELLITUS
     Dosage: DOSE:10 UNIT(S)
     Dates: start: 20100715, end: 20100723
  8. MECOBAMIDE [Concomitant]
     Indication: PROPHYLAXIS
     Route: 048
     Dates: start: 20100603, end: 20100726
  9. APIDRA [Suspect]
     Dosage: 6 UNITS (6-0-0)/DAY DOSE:6 UNIT(S)
     Route: 058
     Dates: start: 20100722, end: 20100722
  10. VOGLIBOSE [Concomitant]
     Indication: DIABETES MELLITUS
     Route: 048
     Dates: end: 20100715
  11. RANITIDINE HCL [Concomitant]
     Indication: PROPHYLAXIS
     Route: 048
     Dates: start: 20100603, end: 20100714
  12. SINGULAIR [Concomitant]
     Route: 048
     Dates: start: 20100603, end: 20100726
  13. FLUTICASONE PROPIONATE/SALMETEROL [Concomitant]
     Route: 055
     Dates: start: 20100603, end: 20100726
  14. LANSOPRAZOLE [Concomitant]
     Indication: PROPHYLAXIS
     Route: 048
     Dates: start: 20100603, end: 20100726
  15. APIDRA [Suspect]
     Dosage: 10 UNITS (2-0-8)/DAY
     Route: 058
     Dates: start: 20100717, end: 20100717
  16. APIDRA [Suspect]
     Dosage: 2 UNITS (2-0-0)/DAY DOSE:2 UNIT(S)
     Route: 058
     Dates: start: 20100720, end: 20100720
  17. APIDRA [Suspect]
     Dosage: 9 UNITS (6-3-0)/DAY
     Route: 058
     Dates: start: 20100723, end: 20100723
  18. LANTUS [Concomitant]
     Dosage: DOSE:15 UNIT(S)
     Dates: start: 20100724, end: 20100725
  19. HUMULIN R [Concomitant]
     Dosage: IN INTRAVENOUS HYPERALIMENTATIVE BASIC SOLUTION, 24 U/24H
     Dates: start: 20100723, end: 20100725
  20. ALLOPURINOL [Concomitant]
     Indication: PROPHYLAXIS
     Route: 048
     Dates: start: 20100603, end: 20100726
  21. HUMULIN R [Concomitant]
     Indication: DIABETES MELLITUS
     Dosage: SLIDING SCALE
     Dates: start: 20100619, end: 20100715
  22. APIDRA [Suspect]
     Indication: DIABETES MELLITUS
     Dosage: 14 UNITS (0-0-14)/DAY DOSE:14 UNIT(S)
     Route: 058
     Dates: start: 20100715, end: 20100715
  23. APIDRA [Suspect]
     Dosage: 20 UNITS (4-6-10)/DAY
     Route: 058
     Dates: start: 20100719, end: 20100719
  24. APIDRA [Suspect]
     Dosage: 17 UNITS (6-3-8)/DAY
     Route: 058
     Dates: start: 20100724, end: 20100724
  25. METFORMIN HCL [Concomitant]
     Indication: DIABETES MELLITUS
     Route: 048
     Dates: start: 20100712, end: 20100715
  26. COTRIM [Concomitant]
     Route: 048
     Dates: start: 20100628, end: 20100726
  27. ENALAPRIL MALEATE [Concomitant]
     Route: 048
     Dates: start: 20100603, end: 20100726

REACTIONS (1)
  - DEATH [None]
